FAERS Safety Report 8064453-2 (Version None)
Quarter: 2012Q1

REPORT INFORMATION
  Report Type: 
  Country: None (occurrence: None)
  Receive Date: 20120123
  Receipt Date: 20120117
  Transmission Date: 20120608
  Serious: Yes (Other)
  Sender: FDA-Public Use
  Company Number: PHBS2006BR13050

PATIENT
  Age: 56 Year
  Sex: Female
  Weight: 57 kg

DRUGS (1)
  1. ESTRADERM [Suspect]
     Indication: HORMONE REPLACEMENT THERAPY
     Dosage: 1 DF, QW2 (TWO ADHESIVES PER WEEK)
     Route: 062
     Dates: start: 20040601

REACTIONS (5)
  - APPLICATION SITE HYPERSENSITIVITY [None]
  - APPLICATION SITE ERYTHEMA [None]
  - GLAUCOMA [None]
  - APPLICATION SITE PRURITUS [None]
  - WEIGHT INCREASED [None]
